FAERS Safety Report 8839257 (Version 1)
Quarter: 2012Q4

REPORT INFORMATION
  Report Type: Spontaneous
  Country: US (occurrence: None)
  Receive Date: 20121012
  Receipt Date: 20121012
  Transmission Date: 20130627
  Serious: Yes (Hospitalization, Other)
  Sender: FDA-Public Use
  Company Number: None

PATIENT
  Age: 63 Year
  Sex: Male
  Weight: 122.2 kg

DRUGS (1)
  1. PRADAXA [Suspect]
     Indication: PAROXYSMAL ATRIAL FIBRILLATION
     Route: 048

REACTIONS (5)
  - Atrial thrombosis [None]
  - Intracardiac thrombus [None]
  - Medical device complication [None]
  - Therapy cessation [None]
  - Treatment noncompliance [None]
